FAERS Safety Report 9716203 (Version 3)
Quarter: 2014Q1

REPORT INFORMATION
  Report Type: Spontaneous
  Country: JP (occurrence: JP)
  Receive Date: 20131127
  Receipt Date: 20140122
  Transmission Date: 20141002
  Serious: Yes (Hospitalization)
  Sender: FDA-Public Use
  Company Number: JP-ASTELLAS-2013JP013027

PATIENT
  Age: 31 Year
  Sex: Female
  Weight: 56 kg

DRUGS (15)
  1. PROGRAF [Suspect]
     Indication: MIXED CONNECTIVE TISSUE DISEASE
     Dosage: 2 MG, UID/QD
     Route: 048
     Dates: start: 20130709, end: 20130718
  2. PROGRAF [Suspect]
     Indication: INTERSTITIAL LUNG DISEASE
     Dosage: 1.5 MG, UID/QD
     Route: 048
     Dates: start: 20130514, end: 20130709
  3. NEORAL [Suspect]
     Indication: MIXED CONNECTIVE TISSUE DISEASE
     Dosage: 100 MG, UID/QD
     Route: 048
     Dates: start: 20130720, end: 20130720
  4. NEORAL [Suspect]
     Indication: INTERSTITIAL LUNG DISEASE
  5. SALIGREN [Concomitant]
     Indication: SJOGREN^S SYNDROME
     Dosage: 30 MG, TID
     Route: 048
     Dates: start: 20100113
  6. BAYASPIRIN [Concomitant]
     Indication: SJOGREN^S SYNDROME
     Dosage: 100 MG, UID/QD
     Route: 048
     Dates: start: 20100107
  7. PREDONINE                          /00016201/ [Concomitant]
     Indication: MIXED CONNECTIVE TISSUE DISEASE
     Dosage: UNK
     Route: 048
     Dates: start: 20100122, end: 20100719
  8. PREDONINE                          /00016201/ [Concomitant]
     Indication: INTERSTITIAL LUNG DISEASE
     Dosage: 10 MG, UID/QD
     Route: 048
     Dates: start: 20100720
  9. TAKEPRON [Concomitant]
     Indication: PROPHYLAXIS AGAINST GASTROINTESTINAL ULCER
     Dosage: 15 MG, UID/QD
     Route: 048
     Dates: start: 20100122
  10. PROCYLIN [Concomitant]
     Indication: MIXED CONNECTIVE TISSUE DISEASE
     Dosage: 40 UG, TID
     Route: 048
     Dates: start: 20100209
  11. BONOTEO [Concomitant]
     Indication: OSTEOPOROSIS PROPHYLAXIS
     Dosage: 50 MG, MONTHLY
     Route: 048
     Dates: start: 20121009
  12. ALFAROL [Concomitant]
     Indication: OSTEOPOROSIS PROPHYLAXIS
     Dosage: 0.5 UG, UID/QD
     Route: 048
     Dates: start: 20121009
  13. NORVASC [Concomitant]
     Indication: BLOOD PRESSURE MANAGEMENT
     Dosage: 2.5 MG, UID/QD
     Route: 048
     Dates: start: 20130717, end: 20130719
  14. CAPTORIL [Concomitant]
     Dosage: 12.5 MG, TID
     Route: 048
     Dates: start: 20130718, end: 20130718
  15. CAPTORIL [Concomitant]
     Dosage: 25 MG, TID
     Route: 048
     Dates: start: 20130719, end: 20130725

REACTIONS (3)
  - Off label use [Unknown]
  - Malignant hypertension [Recovering/Resolving]
  - Hypertensive encephalopathy [Recovered/Resolved]
